FAERS Safety Report 19403566 (Version 1)
Quarter: 2021Q2

REPORT INFORMATION
  Report Type: Spontaneous
  Country: US (occurrence: US)
  Receive Date: 20210610
  Receipt Date: 20210610
  Transmission Date: 20210717
  Serious: Yes (Other)
  Sender: FDA-Public Use
  Company Number: None

PATIENT
  Age: 70 Year
  Sex: Male

DRUGS (2)
  1. INLYTA [Suspect]
     Active Substance: AXITINIB
     Indication: RENAL CELL CARCINOMA
     Route: 048
     Dates: start: 20201215
  2. KEYTRUDA [Suspect]
     Active Substance: PEMBROLIZUMAB
     Indication: RENAL CELL CARCINOMA
     Dosage: ?          OTHER ROUTE:PORT?
     Dates: start: 202101

REACTIONS (5)
  - Glossodynia [None]
  - Alopecia [None]
  - Stomatitis [None]
  - Headache [None]
  - Skin fissures [None]

NARRATIVE: CASE EVENT DATE: 20210401
